FAERS Safety Report 8184726 (Version 2)
Quarter: 2013Q1

REPORT INFORMATION
  Report Type: Spontaneous
  Country: US (occurrence: None)
  Receive Date: 20111005
  Receipt Date: 20121220
  Transmission Date: 20140127
  Serious: Yes (Other)
  Sender: FDA-Public Use
  Company Number: 2011-410

PATIENT
  Age: 62 Year
  Sex: Male

DRUGS (2)
  1. PRIALT [Suspect]
     Dosage: 0.05 UG, ONCE/HOUR, INTRATHECAL?
     Route: 037
     Dates: start: 20110916, end: 20110920
  2. DILAUDID [Suspect]
     Dosage: 0.17 MG, ONCE/HOUR, INTRATHECAL
     Route: 037
     Dates: end: 20110920

REACTIONS (2)
  - Self-injurious ideation [None]
  - Drug withdrawal syndrome [None]
